FAERS Safety Report 6148079-3 (Version None)
Quarter: 2009Q2

REPORT INFORMATION
  Report Type: 
  Country: None (occurrence: None)
  Receive Date: 20090408
  Receipt Date: 20090401
  Transmission Date: 20091009
  Serious: Yes (Other)
  Sender: FDA-Public Use
  Company Number: B0567969A

PATIENT
  Age: 62 Year
  Sex: Female

DRUGS (2)
  1. CLENIL MODULITE [Suspect]
     Indication: ASTHMA
     Route: 055
     Dates: start: 20090209
  2. BECLOMETASONE [Concomitant]
     Indication: ASTHMA
     Route: 055

REACTIONS (2)
  - ASTHMA [None]
  - PEAK EXPIRATORY FLOW RATE DECREASED [None]
